FAERS Safety Report 18121268 (Version 1)
Quarter: 2020Q3

REPORT INFORMATION
  Report Type: Report from Study
  Country: None (occurrence: AR)
  Receive Date: 20200807
  Receipt Date: 20200807
  Transmission Date: 20201103
  Serious: Yes (Other)
  Sender: FDA-Public Use
  Company Number: AR-ABBVIE-20K-007-3513819-00

PATIENT
  Sex: Female

DRUGS (1)
  1. HUMIRA [Suspect]
     Active Substance: ADALIMUMAB
     Indication: PSORIATIC ARTHROPATHY
     Route: 058
     Dates: start: 20150101, end: 202005

REACTIONS (2)
  - Anaemia [Unknown]
  - Iron deficiency [Unknown]

NARRATIVE: CASE EVENT DATE: 2018
